FAERS Safety Report 7231417-8 (Version None)
Quarter: 2011Q1

REPORT INFORMATION
  Report Type: 
  Country: None (occurrence: None)
  Receive Date: 20110118
  Receipt Date: 20110107
  Transmission Date: 20110831
  Serious: Yes (Hospitalization)
  Sender: FDA-Public Use
  Company Number: JP-ASTRAZENECA-2009SE06968

PATIENT
  Age: 28329 Day
  Sex: Male
  Weight: 53 kg

DRUGS (28)
  1. ZOLADEX [Suspect]
     Indication: PROSTATE CANCER
     Route: 058
     Dates: start: 20051101
  2. OMEPRAL [Concomitant]
     Indication: GASTRITIS ATROPHIC
     Route: 048
     Dates: start: 20080401
  3. OMEPRAL [Concomitant]
     Route: 048
     Dates: start: 20090801
  4. SELARA [Concomitant]
     Indication: HYPERTENSION
     Route: 048
     Dates: start: 20090703
  5. UBRETID [Concomitant]
     Indication: DYSURIA
     Route: 048
     Dates: start: 20091130
  6. OMEPRAL [Concomitant]
     Route: 048
     Dates: start: 20090801
  7. COLIOPAN [Concomitant]
     Indication: GASTRITIS ATROPHIC
     Route: 048
     Dates: start: 20080701
  8. ALLOID G [Concomitant]
     Indication: GASTRITIS ATROPHIC
     Route: 048
     Dates: start: 20080901
  9. OMEPRAL [Concomitant]
     Indication: REFLUX OESOPHAGITIS
     Route: 048
     Dates: start: 20080401
  10. ADALAT CC [Concomitant]
     Indication: HYPERTENSION
     Route: 048
     Dates: start: 20080701
  11. URIEF [Concomitant]
     Indication: BENIGN PROSTATIC HYPERPLASIA
     Route: 048
     Dates: start: 20080701
  12. FLIVAS [Concomitant]
     Indication: DYSURIA
     Route: 048
     Dates: start: 20091130
  13. PREDONINE [Suspect]
     Indication: PROSTATE CANCER
     Route: 048
     Dates: start: 20090714
  14. FLUMETHOLON [Concomitant]
     Indication: CONJUNCTIVITIS ALLERGIC
     Dosage: OPTIMAL DOSE THREE TIMES A DAY
     Route: 047
     Dates: start: 20080801
  15. PROCYLIN [Concomitant]
     Indication: LUMBAR SPINAL STENOSIS
     Route: 048
     Dates: start: 20090414
  16. MOBIC [Concomitant]
     Indication: SPINAL OSTEOARTHRITIS
     Route: 048
     Dates: start: 20090414
  17. LUPRAC [Concomitant]
     Indication: CARDIAC FAILURE
     Route: 048
     Dates: start: 20090605
  18. STROCAIN [Concomitant]
     Indication: GASTRITIS ATROPHIC
     Route: 048
     Dates: start: 20080701, end: 20090726
  19. EYEVINAL [Concomitant]
     Indication: CONJUNCTIVITIS ALLERGIC
     Dosage: OPTIMAL DOSE THREE TIMES A DAY
     Route: 047
     Dates: start: 20080801
  20. ASPIRIN [Concomitant]
     Route: 048
     Dates: start: 20090727
  21. DIOVAN [Concomitant]
     Route: 048
     Dates: start: 20090728
  22. VOLTAREN [Concomitant]
     Indication: LUMBAR SPINAL STENOSIS
     Dosage: OPTIMAL DOSE, AS REQUIRED
     Route: 003
     Dates: start: 20061208
  23. PLACEBO [Suspect]
     Indication: PROSTATE CANCER
     Route: 048
     Dates: start: 20090420, end: 20090807
  24. KARY UNI [Concomitant]
     Indication: CATARACT
     Dosage: OPTIMAL DOSE/3-5 DF/DOSE
     Route: 048
     Dates: start: 20100618
  25. PLACEBO [Suspect]
     Route: 048
     Dates: start: 20100222, end: 20101129
  26. MICARDIS [Concomitant]
     Indication: HYPERTENSION
     Route: 048
     Dates: start: 20080401, end: 20090812
  27. OFLOXACIN [Concomitant]
     Indication: CONJUNCTIVITIS ALLERGIC
     Dosage: OPTIMAL DOSE DAILY
     Route: 047
     Dates: start: 20080801
  28. LORCAM [Concomitant]
     Indication: LUMBAR SPINAL STENOSIS
     Route: 048
     Dates: start: 20100315

REACTIONS (3)
  - MYOCARDIAL INFARCTION [None]
  - ABDOMINAL PAIN UPPER [None]
  - PRINZMETAL ANGINA [None]
